FAERS Safety Report 5286348-X (Version None)
Quarter: 2007Q1

REPORT INFORMATION
  Report Type: 
  Country: None (occurrence: None)
  Receive Date: 20070116
  Receipt Date: 20061030
  Transmission Date: 20070707
  Serious: No
  Sender: FDA-Public Use
  Company Number: 2006SP003871

PATIENT
  Age: 58 Year
  Sex: Female
  Weight: 74.8435 kg

DRUGS (4)
  1. LUNESTA [Suspect]
     Indication: INSOMNIA
     Dosage: 2 MG;HS;ORAL
     Route: 048
     Dates: start: 20061017, end: 20061027
  2. LEVOXYL [Concomitant]
  3. CYTOMEL [Concomitant]
  4. METFORMIN HCL [Concomitant]

REACTIONS (3)
  - DRY SKIN [None]
  - PRURITUS [None]
  - RASH [None]
